FAERS Safety Report 17606810 (Version 1)
Quarter: 2020Q1

REPORT INFORMATION
  Report Type: Spontaneous
  Country: FR (occurrence: FR)
  Receive Date: 20200331
  Receipt Date: 20200331
  Transmission Date: 20200409
  Serious: Yes (Other)
  Sender: FDA-Public Use
  Company Number: FR-JNJFOC-20200329606

PATIENT
  Sex: Female

DRUGS (2)
  1. EPITOMAX [Suspect]
     Active Substance: TOPIRAMATE
     Route: 048
  2. EPITOMAX [Suspect]
     Active Substance: TOPIRAMATE
     Indication: MIGRAINE
     Route: 048

REACTIONS (1)
  - Deafness [Unknown]
